FAERS Safety Report 6191413-9 (Version None)
Quarter: 2009Q2

REPORT INFORMATION
  Report Type: 
  Country: None (occurrence: None)
  Receive Date: 20090515
  Receipt Date: 20090424
  Transmission Date: 20091009
  Serious: Yes (Other)
  Sender: FDA-Public Use
  Company Number: RE-ELI_LILLY_AND_COMPANY-RE200905000788

PATIENT
  Age: 69 Year
  Sex: Female

DRUGS (2)
  1. RALOXIFENE HYDROCHLORIDE [Suspect]
     Dosage: UNK, UNKNOWN
     Route: 065
     Dates: end: 20070101
  2. LEVOTHYROX [Concomitant]
     Indication: HYPOTHYROIDISM
     Dosage: UNK, UNKNOWN
     Route: 065

REACTIONS (1)
  - CHRONIC MYELOID LEUKAEMIA [None]
